FAERS Safety Report 7338322-7 (Version None)
Quarter: 2011Q1

REPORT INFORMATION
  Report Type: 
  Country: None (occurrence: None)
  Receive Date: 20110308
  Receipt Date: 20110222
  Transmission Date: 20110831
  Serious: Yes (Hospitalization)
  Sender: FDA-Public Use
  Company Number: JP-BAYER-201014700BYL

PATIENT
  Sex: Male
  Weight: 72 kg

DRUGS (4)
  1. SUMIFERON [Concomitant]
     Indication: METASTASES TO LUNG
     Dosage: 3 MIU (DAILY DOSE), , INTRAVENOUS
     Route: 058
     Dates: start: 20091007, end: 20100726
  2. NEXAVAR [Suspect]
     Indication: RENAL CELL CARCINOMA
     Dosage: 400 MG, BID
     Route: 048
     Dates: start: 20100705, end: 20100803
  3. SUMIFERON [Concomitant]
     Dosage: 3 MIU (DAILY DOSE), , INTRAVENOUS
     Route: 042
     Dates: end: 20100801
  4. SUMIFERON [Concomitant]
     Dosage: 3 MIU (DAILY DOSE), , INTRAVENOUS
     Route: 058
     Dates: start: 20100924

REACTIONS (3)
  - SKIN ULCER [None]
  - IMPAIRED HEALING [None]
  - SKIN NECROSIS [None]
